FAERS Safety Report 10958396 (Version 2)
Quarter: 2015Q1

REPORT INFORMATION
  Report Type: Spontaneous
  Country: JP (occurrence: JP)
  Receive Date: 20150326
  Receipt Date: 20150331
  Transmission Date: 20150721
  Serious: Yes (Other)
  Sender: FDA-Public Use
  Company Number: JP-GLAXOSMITHKLINE-JP2015JPN037592

PATIENT
  Sex: Female

DRUGS (2)
  1. LONASEN [Concomitant]
     Active Substance: BLONANSERIN
     Dosage: UNK
  2. LAMICTAL [Suspect]
     Active Substance: LAMOTRIGINE
     Indication: EPILEPSY
     Dosage: 100 MG, QD
     Route: 048

REACTIONS (3)
  - Mania [Not Recovered/Not Resolved]
  - Schizophrenia [Unknown]
  - Restlessness [Unknown]
